FAERS Safety Report 25876356 (Version 1)
Quarter: 2025Q4

REPORT INFORMATION
  Report Type: Spontaneous
  Country: JP (occurrence: JP)
  Receive Date: 20251003
  Receipt Date: 20251003
  Transmission Date: 20260117
  Serious: Yes (Other)
  Sender: TAKEDA
  Company Number: JP-teijin-202504249_FET_P_1

PATIENT
  Sex: Male

DRUGS (2)
  1. FEBUXOSTAT [Suspect]
     Active Substance: FEBUXOSTAT
     Indication: Blood uric acid increased
     Dosage: 20 MILLIGRAM, QD
     Dates: end: 2025
  2. FEBUXOSTAT [Suspect]
     Active Substance: FEBUXOSTAT
     Dosage: 10 MILLIGRAM, QD
     Dates: start: 2025

REACTIONS (3)
  - Prostate cancer [Unknown]
  - Blood uric acid increased [Unknown]
  - Malaise [Unknown]

NARRATIVE: CASE EVENT DATE: 20250101
